FAERS Safety Report 15641645 (Version 2)
Quarter: 2019Q1

REPORT INFORMATION
  Report Type: Spontaneous
  Country: US (occurrence: US)
  Receive Date: 20181121
  Receipt Date: 20190114
  Transmission Date: 20190417
  Serious: No
  Sender: FDA-Public Use
  Company Number: US-ASTRAZENECA-2018SF49400

PATIENT
  Age: 64 Year
  Sex: Female
  Weight: 81.6 kg

DRUGS (4)
  1. NEXIUM [Suspect]
     Active Substance: ESOMEPRAZOLE MAGNESIUM
     Indication: GASTROOESOPHAGEAL REFLUX DISEASE
     Dosage: DAILY
     Route: 048
     Dates: start: 2008, end: 2012
  2. SYMBICORT [Suspect]
     Active Substance: BUDESONIDE\FORMOTEROL FUMARATE DIHYDRATE
     Indication: ASTHMA
     Dosage: 160/4.5 MCG 2 PUFFS TWICE PER DAY
     Route: 055
     Dates: start: 2016
  3. OMEPRAZOLE. [Suspect]
     Active Substance: OMEPRAZOLE
     Indication: GASTROOESOPHAGEAL REFLUX DISEASE
     Route: 048
     Dates: start: 2012
  4. ZONISAMIDE. [Concomitant]
     Active Substance: ZONISAMIDE
     Indication: MIGRAINE
     Route: 048
     Dates: start: 2016

REACTIONS (7)
  - Drug ineffective [Unknown]
  - Migraine [Recovered/Resolved]
  - Asthma [Unknown]
  - Burn oesophageal [Recovered/Resolved]
  - Product dispensing error [Unknown]
  - Dyspnoea [Unknown]
  - Device malfunction [Unknown]

NARRATIVE: CASE EVENT DATE: 2012
